FAERS Safety Report 8515989-9 (Version None)
Quarter: 2012Q3

REPORT INFORMATION
  Report Type: 
  Country: None (occurrence: None)
  Receive Date: 20120717
  Receipt Date: 20080415
  Transmission Date: 20120928
  Serious: Yes (Other)
  Sender: FDA-Public Use
  Company Number: CO-PFIZER INC-2012170990

PATIENT
  Age: 63 Year
  Sex: Female

DRUGS (7)
  1. OLMESARTAN MEDOXOMIL AND HYDROCHLOROTHIZIDE [Suspect]
     Dosage: 20 MG/ 12.5 MG EVERY 24 HOURS
  2. LIPITOR [Suspect]
     Dosage: 20 MG, 1X/DAY
     Dates: end: 20100609
  3. ACETYLSALICYLIC ACID [Concomitant]
     Dosage: 100 MG, 1X/DAY
  4. PROPRANOLOL [Concomitant]
     Dosage: 40 MG, 2X/DAY
  5. OLMESARTAN MEDOXOMIL [Suspect]
     Dosage: 20 MG, 1X/DAY
  6. NIFEDIPINE [Concomitant]
     Dosage: 30 MG, EVERY 24 HOURS
  7. LIPITOR [Suspect]
     Dosage: 10 MG, 1X/DAY

REACTIONS (3)
  - PERIPHERAL VASCULAR DISORDER [None]
  - HYPERTENSIVE EMERGENCY [None]
  - CEREBROVASCULAR ACCIDENT [None]
